FAERS Safety Report 9438045 (Version 1)
Quarter: 2013Q3

REPORT INFORMATION
  Report Type: Spontaneous
  Country: US (occurrence: US)
  Receive Date: 20130802
  Receipt Date: 20130802
  Transmission Date: 20140515
  Serious: No
  Sender: FDA-Public Use
  Company Number: US-BRISTOL-MYERS SQUIBB COMPANY-18972026

PATIENT
  Age: 90 Year
  Sex: Male

DRUGS (5)
  1. COUMADIN [Suspect]
     Route: 048
     Dates: end: 20130514
  2. COLCRYS [Suspect]
     Indication: GOUT
     Route: 048
     Dates: start: 20130509
  3. LASIX [Concomitant]
     Indication: DIURETIC THERAPY
  4. SIMVASTATIN [Concomitant]
     Indication: BLOOD CHOLESTEROL INCREASED
     Route: 048
  5. XANAX [Concomitant]
     Route: 048

REACTIONS (1)
  - International normalised ratio increased [Recovered/Resolved]
